FAERS Safety Report 18431655 (Version 2)
Quarter: 2023Q1

REPORT INFORMATION
  Report Type: Spontaneous
  Country: US (occurrence: US)
  Receive Date: 20201027
  Receipt Date: 20230127
  Transmission Date: 20230418
  Serious: Yes (Other)
  Sender: FDA-Public Use
  Company Number: US-SANOFI-00324200

PATIENT
  Age: 75 Year
  Sex: Male

DRUGS (1)
  1. LANTUS SOLOSTAR [Suspect]
     Active Substance: INSULIN GLARGINE
     Indication: Diabetes mellitus
     Dosage: 30 U, QD
     Route: 065

REACTIONS (6)
  - Cataract [Unknown]
  - Visual impairment [Unknown]
  - Dehydration [Unknown]
  - Malaise [Unknown]
  - Pollakiuria [Unknown]
  - Illness [Unknown]
